FAERS Safety Report 25643363 (Version 1)
Quarter: 2025Q3

REPORT INFORMATION
  Report Type: Spontaneous
  Country: EU (occurrence: EU)
  Receive Date: 20250805
  Receipt Date: 20250805
  Transmission Date: 20251020
  Serious: Yes (Hospitalization, Other)
  Sender: CELLTRION
  Company Number: EU-ROCHE-10000277494

PATIENT

DRUGS (4)
  1. BEVACIZUMAB [Suspect]
     Active Substance: BEVACIZUMAB
     Indication: Carcinoid tumour pulmonary
     Route: 042
     Dates: start: 20250404
  2. ATEZOLIZUMAB [Suspect]
     Active Substance: ATEZOLIZUMAB
     Indication: Carcinoid tumour pulmonary
     Route: 042
     Dates: start: 20250404
  3. PACLITAXEL [Suspect]
     Active Substance: PACLITAXEL
     Indication: Carcinoid tumour pulmonary
     Route: 042
     Dates: start: 20250404
  4. CARBOPLATIN [Suspect]
     Active Substance: CARBOPLATIN
     Indication: Carcinoid tumour pulmonary
     Route: 042
     Dates: start: 20250404

REACTIONS (3)
  - Neutrophilia [Recovered/Resolved]
  - Pneumonia [Recovered/Resolved]
  - Intentional product use issue [Unknown]

NARRATIVE: CASE EVENT DATE: 20250415
